FAERS Safety Report 19108891 (Version 2)
Quarter: 2021Q3

REPORT INFORMATION
  Report Type: Spontaneous
  Country: GB (occurrence: GB)
  Receive Date: 20210408
  Receipt Date: 20210704
  Transmission Date: 20211014
  Serious: Yes (Other)
  Sender: FDA-Public Use
  Company Number: GB-TEVA-2021-GB-1897521

PATIENT
  Age: 42 Year
  Sex: Female
  Weight: 84.27 kg

DRUGS (4)
  1. RAMIPRIL. [Suspect]
     Active Substance: RAMIPRIL
     Indication: ILL-DEFINED DISORDER
     Dosage: 5 MG
     Route: 048
     Dates: start: 20210323
  2. BETAMETHASONE VALERATE. [Concomitant]
     Active Substance: BETAMETHASONE VALERATE
     Indication: ILL-DEFINED DISORDER
  3. RAMIPRIL. [Suspect]
     Active Substance: RAMIPRIL
     Indication: HYPERTENSION
  4. CERELLE [Concomitant]
     Active Substance: DESOGESTREL
     Indication: ILL-DEFINED DISORDER

REACTIONS (2)
  - Wheezing [Not Recovered/Not Resolved]
  - Cough [Not Recovered/Not Resolved]

NARRATIVE: CASE EVENT DATE: 20210311
